FAERS Safety Report 10147656 (Version 1)
Quarter: 2014Q2

REPORT INFORMATION
  Report Type: Spontaneous
  Country: US (occurrence: US)
  Receive Date: 20140501
  Receipt Date: 20140501
  Transmission Date: 20141212
  Serious: No
  Sender: FDA-Public Use
  Company Number: US-AMGEN-USASP2014023864

PATIENT
  Age: 56 Year
  Sex: Female

DRUGS (1)
  1. ENBREL [Suspect]
     Indication: PSORIASIS
     Dosage: 50 MILLIGRAMS TWICE WEEKLY
     Route: 065
     Dates: start: 20140306

REACTIONS (2)
  - Paranasal sinus discomfort [Recovered/Resolved]
  - Headache [Recovered/Resolved]
